FAERS Safety Report 7073605-X (Version None)
Quarter: 2010Q4

REPORT INFORMATION
  Report Type: 
  Country: None (occurrence: None)
  Receive Date: 20101029
  Receipt Date: 20100715
  Transmission Date: 20110411
  Serious: No
  Sender: FDA-Public Use
  Company Number: A0870657A

PATIENT
  Sex: Female

DRUGS (7)
  1. TRAZODONE [Suspect]
  2. LAMICTAL [Suspect]
     Indication: DEPRESSION
     Dosage: 200MG PER DAY
     Route: 048
     Dates: start: 20100707
  3. ADVAIR [Suspect]
     Indication: CHRONIC OBSTRUCTIVE PULMONARY DISEASE
     Dosage: 1PUFF TWICE PER DAY
     Route: 055
     Dates: start: 20100401
  4. RANITIDINE [Concomitant]
  5. PROAIR HFA [Concomitant]
     Route: 055
  6. GABAPENTIN [Concomitant]
  7. ASPIRIN [Concomitant]

REACTIONS (4)
  - DRY MOUTH [None]
  - NERVOUSNESS [None]
  - PARANOIA [None]
  - VISION BLURRED [None]
